FAERS Safety Report 13547734 (Version 3)
Quarter: 2021Q3

REPORT INFORMATION
  Report Type: Other
  Country: CA (occurrence: CA)
  Receive Date: 20170516
  Receipt Date: 20210921
  Transmission Date: 20211014
  Serious: Yes (Hospitalization, Other)
  Sender: FDA-Public Use
  Company Number: CA-ROCHE-1932401

PATIENT
  Age: 50 Year
  Sex: Female

DRUGS (22)
  1. RITUXAN [Suspect]
     Active Substance: RITUXIMAB
     Dosage: FOR 4 WEEKS?PREVIOUS RITUXAN INFUSION: 04/OCT/2019
     Route: 042
     Dates: start: 20190913, end: 20191004
  2. DIPHENHYDRAMINE HCL [Concomitant]
     Active Substance: DIPHENHYDRAMINE HYDROCHLORIDE
     Route: 048
     Dates: start: 20190104
  3. METHYLPREDNISOLONE. [Concomitant]
     Active Substance: METHYLPREDNISOLONE
     Dosage: ONGOING, UNCONFIRMED PREVIOUS EXPOSURE AS NO PIRS RECEIVED PRIOR TO 04?JAN?2019
     Route: 042
     Dates: start: 20180606, end: 20201019
  4. RITUXAN [Suspect]
     Active Substance: RITUXIMAB
     Dosage: OVER 8 HOURS, SINGLE INFUSION
     Route: 042
     Dates: start: 20180104, end: 20180104
  5. METHYLPREDNISOLONE. [Concomitant]
     Active Substance: METHYLPREDNISOLONE
     Route: 042
     Dates: start: 20190104
  6. RITUXAN [Suspect]
     Active Substance: RITUXIMAB
     Indication: CRYOGLOBULINAEMIA
     Dosage: LAST DOSE OF RITUXIMAB WAS ON 22/NOV/2016, PATIENT WAS INFUSED WITH JEWISH HOSPITAL
     Route: 042
     Dates: start: 20150608
  7. RITUXAN [Suspect]
     Active Substance: RITUXIMAB
     Dosage: INITIATED OUTSIDE RPAP IN HOSPITAL.
     Route: 042
     Dates: start: 20150601, end: 20150615
  8. RITUXAN [Suspect]
     Active Substance: RITUXIMAB
     Route: 042
     Dates: start: 20200116, end: 20200130
  9. RITUXAN [Suspect]
     Active Substance: RITUXIMAB
     Dosage: SINGLE INFUSIONS EVERY 3?4 MONTHS
     Route: 042
     Dates: start: 20200416
  10. DIPHENHYDRAMINE HCL [Concomitant]
     Active Substance: DIPHENHYDRAMINE HYDROCHLORIDE
     Indication: PREMEDICATION
     Route: 048
     Dates: start: 20170508
  11. METHYLPREDNISOLONE. [Concomitant]
     Active Substance: METHYLPREDNISOLONE
     Route: 042
     Dates: start: 20210118, end: 20210118
  12. RITUXAN [Suspect]
     Active Substance: RITUXIMAB
     Dosage: OVER 8 HOURS, FIRST DOSE THROUGH RPAP, RETREATMENTS EVERY 4 ? 6 MONTHS AS REQUIRED.
     Route: 042
     Dates: start: 20170508, end: 20170901
  13. RITUXAN [Suspect]
     Active Substance: RITUXIMAB
     Route: 042
     Dates: start: 20180112, end: 20180606
  14. ACETAMINOPHEN. [Concomitant]
     Active Substance: ACETAMINOPHEN
     Route: 048
     Dates: start: 20190104
  15. METHYLPREDNISOLONE. [Concomitant]
     Active Substance: METHYLPREDNISOLONE
     Route: 042
     Dates: start: 20150608
  16. METHYLPREDNISOLONE. [Concomitant]
     Active Substance: METHYLPREDNISOLONE
     Route: 042
     Dates: start: 20210519
  17. LABETALOL [Concomitant]
     Active Substance: LABETALOL\LABETALOL HYDROCHLORIDE
  18. METHYLPREDNISOLONE. [Concomitant]
     Active Substance: METHYLPREDNISOLONE
     Indication: PREMEDICATION
     Route: 042
     Dates: start: 20170508
  19. DIPHENHYDRAMINE HCL [Concomitant]
     Active Substance: DIPHENHYDRAMINE HYDROCHLORIDE
     Route: 048
     Dates: start: 20150608
  20. ACETAMINOPHEN. [Concomitant]
     Active Substance: ACETAMINOPHEN
     Indication: PREMEDICATION
     Route: 048
     Dates: start: 20170508
  21. ACETAMINOPHEN. [Concomitant]
     Active Substance: ACETAMINOPHEN
     Route: 048
     Dates: start: 20150608
  22. RITUXAN [Suspect]
     Active Substance: RITUXIMAB
     Dosage: PATIENT ADVISED DURING ENROLMENT THAT SHE RECEIVED 4 DOSES
     Route: 042
     Dates: start: 2015, end: 2017

REACTIONS (29)
  - Blood pressure increased [Unknown]
  - Blood pressure systolic increased [Unknown]
  - Hypertension [Unknown]
  - Diarrhoea [Unknown]
  - Vasculitis [Unknown]
  - Wrong technique in product usage process [Unknown]
  - Eczema [Not Recovered/Not Resolved]
  - Heart rate increased [Unknown]
  - Wound infection [Recovering/Resolving]
  - Intentional product misuse [Unknown]
  - Cardiac disorder [Recovering/Resolving]
  - Musculoskeletal stiffness [Unknown]
  - Off label use [Unknown]
  - Blood pressure diastolic abnormal [Unknown]
  - Renal failure [Unknown]
  - Myocardial infarction [Recovering/Resolving]
  - Limb injury [Not Recovered/Not Resolved]
  - Joint stiffness [Unknown]
  - Intentional product use issue [Unknown]
  - Blood pressure systolic abnormal [Unknown]
  - Blood pressure fluctuation [Unknown]
  - Infusion related reaction [Not Recovered/Not Resolved]
  - Pulmonary oedema [Unknown]
  - Cardiac disorder [Unknown]
  - Headache [Recovered/Resolved]
  - Product administration error [Unknown]
  - Oxygen saturation decreased [Unknown]
  - Infusion related reaction [Recovered/Resolved]
  - Arthralgia [Unknown]

NARRATIVE: CASE EVENT DATE: 20170502
